FAERS Safety Report 11341764 (Version 2)
Quarter: 2015Q3

REPORT INFORMATION
  Report Type: Spontaneous
  Country: US (occurrence: US)
  Receive Date: 20150805
  Receipt Date: 20150825
  Transmission Date: 20151125
  Serious: Yes (Hospitalization)
  Sender: FDA-Public Use
  Company Number: US-BAYER-2015-393464

PATIENT
  Age: 18 Year
  Sex: Female
  Weight: 98.87 kg

DRUGS (2)
  1. ALBUTEROL. [Concomitant]
     Active Substance: ALBUTEROL
     Indication: ASTHMA
     Route: 049
  2. MIRENA [Suspect]
     Active Substance: LEVONORGESTREL
     Indication: CONTRACEPTION
     Dosage: 20 MCG/24HR, CONT
     Route: 015
     Dates: start: 20121002, end: 20130829

REACTIONS (6)
  - Uterine perforation [None]
  - Device dislocation [None]
  - Nausea [None]
  - Diarrhoea [None]
  - Injury [None]
  - Abdominal pain lower [None]

NARRATIVE: CASE EVENT DATE: 20130827
